FAERS Safety Report 8044020-7 (Version None)
Quarter: 2011Q4

REPORT INFORMATION
  Report Type: 
  Country: None (occurrence: None)
  Receive Date: 20111202
  Receipt Date: 20101209
  Transmission Date: 20120403
  Serious: Yes (Other)
  Sender: FDA-Public Use
  Company Number: WAES 1007USA01040

PATIENT
  Age: 74 Year
  Sex: Female
  Weight: 66.2252 kg

DRUGS (2)
  1. FOSAMAX [Suspect]
     Indication: OSTEOPOROSIS
     Dosage: 70 MG/PO
     Route: 048
     Dates: start: 20050113, end: 20080812
  2. LIPITOR [Concomitant]

REACTIONS (19)
  - MASTICATION DISORDER [None]
  - WEIGHT DECREASED [None]
  - MEMORY IMPAIRMENT [None]
  - WEIGHT [None]
  - DYSPEPSIA [None]
  - EARLY SATIETY [None]
  - OVERDOSE [None]
  - IMPAIRED HEALING [None]
  - INTESTINAL MASS [None]
  - HAEMORRHOIDS [None]
  - OEDEMA PERIPHERAL [None]
  - DENTAL FISTULA [None]
  - TRANSIENT ISCHAEMIC ATTACK [None]
  - DIZZINESS [None]
  - TOOTH DISORDER [None]
  - OSTEONECROSIS OF JAW [None]
  - ROSACEA [None]
  - TOOTH LOSS [None]
  - GASTROINTESTINAL DISORDER [None]
